FAERS Safety Report 13090974 (Version 1)
Quarter: 2017Q1

REPORT INFORMATION
  Report Type: Spontaneous
  Country: US (occurrence: US)
  Receive Date: 20170106
  Receipt Date: 20170106
  Transmission Date: 20170428
  Serious: Yes (Death)
  Sender: FDA-Public Use
  Company Number: US-JNJFOC-20161225916

PATIENT
  Age: 70 Year
  Sex: Female

DRUGS (5)
  1. ACETAMINOPHEN. [Suspect]
     Active Substance: ACETAMINOPHEN
     Route: 065
  2. LEVOTHYROXINE. [Suspect]
     Active Substance: LEVOTHYROXINE
     Indication: SUICIDE ATTEMPT
     Dosage: INGESTION AND DERMAL USE
     Route: 065
  3. HYDROXYZINE [Suspect]
     Active Substance: HYDROXYZINE HYDROCHLORIDE
     Indication: SUICIDE ATTEMPT
     Dosage: INGESTION AND DERMAL USE
     Route: 065
  4. ACETAMINOPHEN. [Suspect]
     Active Substance: ACETAMINOPHEN
     Indication: SUICIDE ATTEMPT
     Dosage: INGESTION AND DERMAL USE
     Route: 065
  5. HYPOCHLORITE [Suspect]
     Active Substance: HYPOCHLORITE ION
     Indication: SUICIDE ATTEMPT
     Dosage: INGESTION AND DERMAL USE
     Route: 065

REACTIONS (1)
  - Toxicity to various agents [Fatal]
